FAERS Safety Report 10461867 (Version 1)
Quarter: 2014Q3

REPORT INFORMATION
  Report Type: Spontaneous
  Country: US (occurrence: None)
  Receive Date: 20140916
  Receipt Date: 20140916
  Transmission Date: 20150326
  Serious: Yes (Hospitalization, Other)
  Sender: FDA-Public Use
  Company Number: 2010S1000559

PATIENT
  Age: 60 Year
  Sex: Female

DRUGS (8)
  1. HYDROCHLOROTHIAZIDE. [Concomitant]
     Active Substance: HYDROCHLOROTHIAZIDE
  2. PREVACID [Concomitant]
     Active Substance: LANSOPRAZOLE
  3. PHOSPHO-SODA [Suspect]
     Active Substance: SODIUM PHOSPHATE, DIBASIC\SODIUM PHOSPHATE, MONOBASIC
     Indication: COLONOSCOPY
     Route: 048
     Dates: start: 20080504
  4. BENICAR [Concomitant]
     Active Substance: OLMESARTAN MEDOXOMIL
  5. VERAPAMIL [Concomitant]
     Active Substance: VERAPAMIL HYDROCHLORIDE
  6. ALLOPURINOL. [Concomitant]
     Active Substance: ALLOPURINOL
  7. INDERAL [Concomitant]
     Active Substance: PROPRANOLOL HYDROCHLORIDE
  8. VICODIN [Concomitant]
     Active Substance: ACETAMINOPHEN\HYDROCODONE BITARTRATE

REACTIONS (21)
  - Fatigue [None]
  - Renal failure chronic [None]
  - Diarrhoea [None]
  - Nephrogenic anaemia [None]
  - Blood pressure increased [None]
  - Chest discomfort [None]
  - Renal failure [None]
  - Kidney infection [None]
  - Prerenal failure [None]
  - Headache [None]
  - Nausea [None]
  - Hypophagia [None]
  - Dyspnoea [None]
  - Renal failure acute [None]
  - Amnesia [None]
  - Renal tubular necrosis [None]
  - Renal artery stenosis [None]
  - Anaemia [None]
  - Tubulointerstitial nephritis [None]
  - Asthenia [None]
  - Vomiting [None]

NARRATIVE: CASE EVENT DATE: 200806
